FAERS Safety Report 21118556 (Version 2)
Quarter: 2022Q3

REPORT INFORMATION
  Report Type: Spontaneous
  Country: AR (occurrence: AR)
  Receive Date: 20220722
  Receipt Date: 20220731
  Transmission Date: 20221026
  Serious: Yes (Death, Hospitalization)
  Sender: FDA-Public Use
  Company Number: AR-NOVARTISPH-NVSC2022AR166149

PATIENT
  Age: 27 Year
  Sex: Male

DRUGS (2)
  1. ZOMETA [Suspect]
     Active Substance: ZOLEDRONIC ACID
     Indication: Germ cell cancer
     Dosage: DOSE 2, QMO (START DATE 4 MONTHS, 2 (UNITS NOT PROVIDED) MONTHLY)
     Route: 065
     Dates: start: 202203
  2. INTERFERON [Concomitant]
     Active Substance: INTERFERON
     Indication: Product used for unknown indication
     Dosage: UNK
     Route: 065
     Dates: start: 202203

REACTIONS (4)
  - Acute respiratory failure [Fatal]
  - Germ cell cancer [Fatal]
  - Malignant neoplasm progression [Fatal]
  - Product use in unapproved indication [Unknown]

NARRATIVE: CASE EVENT DATE: 20220301
